FAERS Safety Report 15417401 (Version 2)
Quarter: 2018Q3

REPORT INFORMATION
  Report Type: Spontaneous
  Country: BG (occurrence: BG)
  Receive Date: 20180924
  Receipt Date: 20180927
  Transmission Date: 20181010
  Serious: Yes (Other)
  Sender: FDA-Public Use
  Company Number: BG-BAYER-2018-173620

PATIENT
  Age: 63 Year
  Sex: Male

DRUGS (10)
  1. ASPIRIN PROTECT 100 MG [Suspect]
     Active Substance: ASPIRIN
     Dosage: UNK
  2. NEBIVOLOL. [Concomitant]
     Active Substance: NEBIVOLOL
     Dosage: UNK
  3. CHLOPHAZOLIN [Concomitant]
     Active Substance: CLONIDINE HYDROCHLORIDE
     Dosage: 1 DF, TID
  4. NOVORAPID [Concomitant]
     Active Substance: INSULIN ASPART
     Dosage: 18+10+18
  5. AGAPURIN [Concomitant]
     Dosage: 1 DF, BID
  6. TERTENSIF [Concomitant]
     Active Substance: INDAPAMIDE
     Dosage: 1 DF, QD
  7. LEVEMIR [Concomitant]
     Active Substance: INSULIN DETEMIR
     Dosage: 30 DF, UNK
  8. VICTOZA [Concomitant]
     Active Substance: LIRAGLUTIDE
     Dosage: 1.2 MG, UNK
     Route: 058
  9. TRIFAS [Concomitant]
     Dosage: 5 MG, QD
  10. ENALAPRIL [Concomitant]
     Active Substance: ENALAPRIL
     Dosage: 20 MG, BID

REACTIONS (9)
  - Asthenia [None]
  - Peripheral vascular disorder [None]
  - Peripheral venous disease [None]
  - Breath sounds abnormal [None]
  - Dyspnoea [None]
  - Oedema peripheral [None]
  - Tachyarrhythmia [None]
  - Cardiac failure [None]
  - Palpitations [None]

NARRATIVE: CASE EVENT DATE: 201805
